FAERS Safety Report 8926702 (Version 2)
Quarter: 2012Q4

REPORT INFORMATION
  Report Type: 
  Country: US (occurrence: US)
  Receive Date: 20121127
  Receipt Date: 20121217
  Transmission Date: 20130627
  Serious: No
  Sender: FDA-Public Use
  Company Number: US-PFIZER INC-2012291062

PATIENT
  Sex: Female

DRUGS (1)
  1. EPIPEN [Suspect]
     Dosage: UNK

REACTIONS (10)
  - Accidental exposure to product [Recovered/Resolved]
  - Expired drug administered [Recovered/Resolved]
  - Skin discolouration [Recovering/Resolving]
  - Local swelling [Recovered/Resolved]
  - Paraesthesia [Recovered/Resolved]
  - Pain in extremity [Recovered/Resolved]
  - Injection site bruising [Not Recovered/Not Resolved]
  - Head discomfort [Recovered/Resolved]
  - Nervousness [Unknown]
  - Somnolence [Unknown]
